FAERS Safety Report 9642837 (Version 5)
Quarter: 2016Q3

REPORT INFORMATION
  Report Type: Report from Study
  Country: BR (occurrence: BR)
  Receive Date: 20131024
  Receipt Date: 20160819
  Transmission Date: 20161109
  Serious: Yes (Other)
  Sender: FDA-Public Use
  Company Number: PHHY2013BR114734

PATIENT
  Age: 61 Year
  Sex: Female
  Weight: 55 kg

DRUGS (6)
  1. SANDOSTATIN LAR DEPOT [Suspect]
     Active Substance: OCTREOTIDE ACETATE
     Dosage: 30 MG, QMO, EVERY 28 DAYS
     Route: 030
  2. SANDOSTATIN LAR DEPOT [Suspect]
     Active Substance: OCTREOTIDE ACETATE
     Indication: ACROMEGALY
     Dosage: 20 MG, QMO, EVERY 28 DAYS
     Route: 030
     Dates: end: 20091029
  3. BROMOCRIPTINE [Concomitant]
     Active Substance: BROMOCRIPTINE
     Indication: BLOOD PROLACTIN INCREASED
     Dosage: UNK
     Route: 065
  4. CABERGOLINE. [Concomitant]
     Active Substance: CABERGOLINE
     Indication: BLOOD PROLACTIN INCREASED
     Dosage: 4 DF, QD
     Route: 048
  5. SANDOSTATIN LAR DEPOT [Suspect]
     Active Substance: OCTREOTIDE ACETATE
     Dosage: 30 MG, QMO, EVERY 28 DAYS
     Route: 030
     Dates: start: 20091126
  6. SANDOSTATIN LAR DEPOT [Suspect]
     Active Substance: OCTREOTIDE ACETATE
     Dosage: 10 MG, UNK
     Route: 030

REACTIONS (15)
  - Cardiomegaly [Unknown]
  - Inguinal hernia [Unknown]
  - Nasal discomfort [Not Recovered/Not Resolved]
  - Weight increased [Unknown]
  - Benign breast neoplasm [Not Recovered/Not Resolved]
  - Galactorrhoea [Not Recovered/Not Resolved]
  - General physical health deterioration [Unknown]
  - Therapy non-responder [Unknown]
  - Neoplasm progression [Unknown]
  - Mammary duct ectasia [Unknown]
  - Blood growth hormone increased [Unknown]
  - Nasal obstruction [Not Recovered/Not Resolved]
  - Dyspnoea [Not Recovered/Not Resolved]
  - Rhinitis [Not Recovered/Not Resolved]
  - Lung disorder [Unknown]

NARRATIVE: CASE EVENT DATE: 201605
